FAERS Safety Report 15156378 (Version 1)
Quarter: 2018Q3

REPORT INFORMATION
  Report Type: Spontaneous
  Country: US (occurrence: US)
  Receive Date: 20180717
  Receipt Date: 20180717
  Transmission Date: 20181010
  Serious: Yes (Hospitalization)
  Sender: FDA-Public Use
  Company Number: US-OTSUKA-2018_018135

PATIENT
  Sex: Female

DRUGS (10)
  1. TOPAMAX [Concomitant]
     Active Substance: TOPIRAMATE
     Indication: PRODUCT USED FOR UNKNOWN INDICATION
     Dosage: 200 MG, TID (3QD)
     Route: 065
  2. VITAMIN D [Concomitant]
     Active Substance: CHOLECALCIFEROL
     Indication: PRODUCT USED FOR UNKNOWN INDICATION
     Dosage: UNK, QD (2000 IV DAILY)
     Route: 065
  3. GABAPENTIN. [Concomitant]
     Active Substance: GABAPENTIN
     Indication: PRODUCT USED FOR UNKNOWN INDICATION
     Dosage: UNK, (600MG 2QAM, 600MG C4PM, 600MG 3Q HS)
     Route: 065
  4. XANAX [Concomitant]
     Active Substance: ALPRAZOLAM
     Indication: PRODUCT USED FOR UNKNOWN INDICATION
     Dosage: 2 MG, QID (4XQD)
     Route: 065
  5. LIPITOR [Concomitant]
     Active Substance: ATORVASTATIN CALCIUM
     Indication: PRODUCT USED FOR UNKNOWN INDICATION
     Dosage: 200 MG, QD
     Route: 065
  6. CALCIUM [Concomitant]
     Active Substance: CALCIUM
     Indication: PRODUCT USED FOR UNKNOWN INDICATION
     Dosage: UNK, QD (600)
     Route: 065
  7. ABILIFY [Suspect]
     Active Substance: ARIPIPRAZOLE
     Indication: PRODUCT USED FOR UNKNOWN INDICATION
     Dosage: UNK
     Route: 065
     Dates: start: 2011, end: 2016
  8. NEXIUM [Concomitant]
     Active Substance: ESOMEPRAZOLE MAGNESIUM
     Indication: PRODUCT USED FOR UNKNOWN INDICATION
     Dosage: 40 MG, QD
     Route: 065
  9. NEURONTIN [Concomitant]
     Active Substance: GABAPENTIN
     Indication: MOOD ALTERED
     Dosage: UNK
     Route: 065
  10. ZOLOFT [Concomitant]
     Active Substance: SERTRALINE HYDROCHLORIDE
     Indication: PRODUCT USED FOR UNKNOWN INDICATION
     Dosage: 200 MG, QD
     Route: 065

REACTIONS (25)
  - Mood altered [Unknown]
  - Poor quality sleep [Unknown]
  - Sleep disorder [Unknown]
  - Mental disorder [Unknown]
  - Bipolar II disorder [Unknown]
  - Gastrointestinal disorder [Unknown]
  - Impulsive behaviour [Unknown]
  - Mania [Unknown]
  - Affect lability [Unknown]
  - Hyperthyroidism [Unknown]
  - Emotional distress [Unknown]
  - Anxiety disorder [Unknown]
  - Depressed mood [Unknown]
  - Thinking abnormal [Unknown]
  - Tongue disorder [Unknown]
  - Gambling disorder [Unknown]
  - Hospitalisation [Unknown]
  - Neuropsychiatric symptoms [Unknown]
  - Inappropriate affect [Unknown]
  - Hypomania [Unknown]
  - Somnolence [Unknown]
  - Injury [Unknown]
  - Anxiety [Unknown]
  - Fatigue [Unknown]
  - Economic problem [Unknown]

NARRATIVE: CASE EVENT DATE: 20121231
